FAERS Safety Report 18197965 (Version 2)
Quarter: 2021Q1

REPORT INFORMATION
  Report Type: Report from Study
  Country: BR (occurrence: BR)
  Receive Date: 20200826
  Receipt Date: 20210108
  Transmission Date: 20210419
  Serious: Yes (Life-Threatening, Other)
  Sender: FDA-Public Use
  Company Number: NVSC2019BR033337

PATIENT
  Age: 45 Year
  Sex: Female
  Weight: 70 kg

DRUGS (7)
  1. COSENTYX [Suspect]
     Active Substance: SECUKINUMAB
     Dosage: 300 MG, UNKNOWN
     Route: 065
     Dates: start: 201904
  2. COSENTYX [Suspect]
     Active Substance: SECUKINUMAB
     Dosage: UNK
     Route: 065
     Dates: start: 20200813
  3. COSENTYX [Suspect]
     Active Substance: SECUKINUMAB
     Dosage: UNK
     Route: 065
     Dates: start: 20200713
  4. COSENTYX [Suspect]
     Active Substance: SECUKINUMAB
     Indication: PSORIASIS
     Dosage: 300 MG, QMO
     Route: 058
     Dates: start: 20190430
  5. COSENTYX [Suspect]
     Active Substance: SECUKINUMAB
     Dosage: UNK (15 OCT/NOV 20)
     Route: 065
     Dates: start: 2020
  6. COSENTYX [Suspect]
     Active Substance: SECUKINUMAB
     Indication: PSORIATIC ARTHROPATHY
     Dosage: 300 MG, QMO
     Route: 058
     Dates: start: 20190430
  7. COSENTYX [Suspect]
     Active Substance: SECUKINUMAB
     Dosage: UNK
     Route: 065
     Dates: start: 20191030

REACTIONS (21)
  - Eating disorder [Recovered/Resolved]
  - Onychomadesis [Not Recovered/Not Resolved]
  - Arthralgia [Not Recovered/Not Resolved]
  - COVID-19 [Recovered/Resolved]
  - Pain in extremity [Not Recovered/Not Resolved]
  - Eating disorder [Not Recovered/Not Resolved]
  - Psoriasis [Recovered/Resolved]
  - Drug dependence [Not Recovered/Not Resolved]
  - Headache [Not Recovered/Not Resolved]
  - Gait disturbance [Not Recovered/Not Resolved]
  - Alopecia [Not Recovered/Not Resolved]
  - Skin discolouration [Not Recovered/Not Resolved]
  - Pyrexia [Recovered/Resolved]
  - Pigmentation disorder [Not Recovered/Not Resolved]
  - Chills [Recovered/Resolved]
  - Pain [Not Recovered/Not Resolved]
  - Dandruff [Not Recovered/Not Resolved]
  - Influenza [Recovered/Resolved]
  - Tension [Recovered/Resolved]
  - Influenza [Recovered/Resolved]
  - Nausea [Not Recovered/Not Resolved]

NARRATIVE: CASE EVENT DATE: 201910
